FAERS Safety Report 14970061 (Version 1)
Quarter: 2018Q2

REPORT INFORMATION
  Report Type: Spontaneous
  Country: FR (occurrence: FR)
  Receive Date: 20180604
  Receipt Date: 20180604
  Transmission Date: 20180711
  Serious: Yes (Other)
  Sender: FDA-Public Use
  Company Number: FR-TEVA-2018-FR-901626

PATIENT
  Age: 81 Year
  Sex: Female
  Weight: 43 kg

DRUGS (13)
  1. RAMIPRIL. [Suspect]
     Active Substance: RAMIPRIL
     Indication: ESSENTIAL HYPERTENSION
     Route: 048
     Dates: start: 20180215, end: 20180223
  2. DUROGESIC [Concomitant]
     Active Substance: FENTANYL
     Route: 062
  3. FLUVASTATINE BASE [Concomitant]
     Active Substance: FLUVASTATIN SODIUM
     Dosage: 20 MILLIGRAM DAILY;
     Route: 048
     Dates: end: 20180212
  4. OMEPRAZOLE. [Concomitant]
     Active Substance: OMEPRAZOLE
     Dosage: 20 MILLIGRAM DAILY;
     Route: 048
  5. LOVENOX 2000 UI ANTI-XA/0,2 ML, SOLUTION INJECTABLE EN AMPOULE [Concomitant]
     Dosage: 1 DOSAGE FORMS DAILY;
     Route: 058
     Dates: start: 20180214
  6. AMLODIPINE [Concomitant]
     Active Substance: AMLODIPINE BESYLATE
     Dosage: 5 MILLIGRAM DAILY;
     Route: 048
  7. EUPRESSYL 30 MG, G?LULE [Concomitant]
     Dosage: IF NECESSARY
     Route: 048
     Dates: start: 20180219
  8. DIFFU K, G?LULE [Concomitant]
     Active Substance: POTASSIUM CHLORIDE
     Route: 048
     Dates: end: 20180214
  9. VALSARTAN. [Concomitant]
     Active Substance: VALSARTAN
     Route: 048
     Dates: start: 20180223
  10. KARDEGIC [Concomitant]
     Active Substance: ASPIRIN DL-LYSINE
     Indication: ANGINA PECTORIS
     Dosage: 1 DOSAGE FORMS DAILY;
     Route: 048
     Dates: end: 20180212
  11. URAPIDIL [Concomitant]
     Active Substance: URAPIDIL
     Route: 042
     Dates: start: 20180213, end: 20180217
  12. PANTOPRAZOLE [Concomitant]
     Active Substance: PANTOPRAZOLE
     Dosage: 20 MILLIGRAM DAILY;
     Route: 048
  13. DISCOTRINE 10 MG/24 HEURES, DISPOSITIF TRANSDERMIQUE [Concomitant]
     Route: 062

REACTIONS (1)
  - Neutropenia [Recovered/Resolved]

NARRATIVE: CASE EVENT DATE: 20180222
